FAERS Safety Report 20826177 (Version 1)
Quarter: 2022Q2

REPORT INFORMATION
  Report Type: Spontaneous
  Country: CN (occurrence: CN)
  Receive Date: 20220513
  Receipt Date: 20220513
  Transmission Date: 20220721
  Serious: Yes (Other)
  Sender: FDA-Public Use
  Company Number: CN-PFIZER INC-202200679675

PATIENT
  Age: 5 Week
  Sex: Male
  Weight: 2.25 kg

DRUGS (4)
  1. FLUCONAZOLE [Suspect]
     Active Substance: FLUCONAZOLE
     Indication: Candida infection
     Dosage: 1 DF, 1X/DAY
     Route: 041
     Dates: start: 20220318, end: 20220406
  2. FLUCONAZOLE [Suspect]
     Active Substance: FLUCONAZOLE
     Indication: Enterococcal infection
  3. SODIUM CHLORIDE [Concomitant]
     Active Substance: SODIUM CHLORIDE
     Indication: Candida infection
     Dosage: 1 DF, 1X/DAY
     Route: 041
     Dates: start: 20220308, end: 20220318
  4. SODIUM CHLORIDE [Concomitant]
     Active Substance: SODIUM CHLORIDE
     Indication: Enterococcal infection

REACTIONS (3)
  - Total bile acids increased [Recovering/Resolving]
  - Gallbladder enlargement [Recovering/Resolving]
  - Cholestasis [Recovering/Resolving]

NARRATIVE: CASE EVENT DATE: 20220404
